FAERS Safety Report 5086567-1 (Version None)
Quarter: 2006Q3

REPORT INFORMATION
  Report Type: 
  Country: None (occurrence: None)
  Receive Date: 20060823
  Receipt Date: 20060816
  Transmission Date: 20061208
  Serious: Yes (Other)
  Sender: FDA-Public Use
  Company Number: 20060601742

PATIENT
  Age: 57 Year
  Sex: Female

DRUGS (5)
  1. LAMIVUDINE [Suspect]
     Indication: DRUG USE FOR UNKNOWN INDICATION
     Dates: start: 20050608
  2. ZIDOVUDINE [Suspect]
     Indication: DRUG USE FOR UNKNOWN INDICATION
     Dates: start: 20050608
  3. PROCRIT [Suspect]
     Indication: ANAEMIA OF MALIGNANT DISEASE
     Route: 058
     Dates: end: 20060301
  4. GLEEVEC [Concomitant]
  5. AZT [Concomitant]

REACTIONS (6)
  - ANAEMIA [None]
  - APLASIA PURE RED CELL [None]
  - CHRONIC MYELOID LEUKAEMIA [None]
  - HEPATITIS C [None]
  - MARROW HYPERPLASIA [None]
  - THERAPEUTIC RESPONSE DECREASED [None]
